FAERS Safety Report 11739709 (Version 1)
Quarter: 2015Q4

REPORT INFORMATION
  Report Type: Spontaneous
  Country: IT (occurrence: IT)
  Receive Date: 20151113
  Receipt Date: 20151113
  Transmission Date: 20160304
  Serious: Yes (Hospitalization)
  Sender: FDA-Public Use
  Company Number: IT-TEVA-607314ACC

PATIENT
  Age: 78 Year
  Sex: Female

DRUGS (7)
  1. SIRIO - 25 MG + 100 MG COMPRESSE EFFERVESCENTI [Concomitant]
     Active Substance: CARBIDOPA\MELEVODOPA
     Indication: PARKINSON^S DISEASE
     Dosage: 250 MG
     Route: 048
  2. SERENASE - 2 MG/ML GOCCE ORALI SOLUZIONE [Suspect]
     Active Substance: HALOPERIDOL
     Indication: PRODUCT USED FOR UNKNOWN INDICATION
     Dosage: 20 GTT TOTAL
     Route: 048
     Dates: start: 20151022, end: 20151022
  3. SINEMET - 100 MG + 25 MG COMPRESSE [Concomitant]
     Indication: PARKINSON^S DISEASE
     Dosage: 1000 MG
     Route: 048
  4. RASAGILINE MESILATE [Concomitant]
     Active Substance: RASAGILINE MESYLATE
     Indication: PARKINSON^S DISEASE
     Dosage: 1 MG
     Route: 048
  5. QUETIAPINE [Suspect]
     Active Substance: QUETIAPINE
     Indication: CONFUSIONAL STATE
     Dosage: 12.5 MILLIGRAM DAILY; 12.5 MG DAILY
     Route: 048
     Dates: start: 20151022, end: 20151026
  6. REQUIP [Concomitant]
     Active Substance: ROPINIROLE HYDROCHLORIDE
     Indication: PARKINSON^S DISEASE
     Dosage: 24 MG
     Route: 048
  7. QUETIAPINE [Suspect]
     Active Substance: QUETIAPINE
     Indication: AGGRESSION

REACTIONS (5)
  - Bradyphrenia [Not Recovered/Not Resolved]
  - Gait disturbance [Not Recovered/Not Resolved]
  - Muscle rigidity [Not Recovered/Not Resolved]
  - Bradykinesia [Not Recovered/Not Resolved]
  - Slow speech [Not Recovered/Not Resolved]

NARRATIVE: CASE EVENT DATE: 20151022
